FAERS Safety Report 8822289 (Version 1)
Quarter: 2012Q4

REPORT INFORMATION
  Report Type: Report from Study
  Country: DE (occurrence: DE)
  Receive Date: 20121003
  Receipt Date: 20121003
  Transmission Date: 20130627
  Serious: Yes (Death, Hospitalization)
  Sender: FDA-Public Use
  Company Number: PHHY2012DE084123

PATIENT
  Age: 50 Year
  Sex: Female
  Weight: 64.3 kg

DRUGS (2)
  1. INTERFERON BETA-1B [Suspect]
     Indication: MULTIPLE SCLEROSIS
     Dosage: 250 ug, QOD
     Route: 058
     Dates: start: 20100518
  2. MINOCYCLINE [Concomitant]
     Dosage: 50 mg, QOD

REACTIONS (8)
  - Diverticulitis [Recovered/Resolved]
  - General physical condition abnormal [Recovered/Resolved]
  - Uterine cyst [Recovered/Resolved]
  - Pyrexia [Recovered/Resolved]
  - Chills [Recovered/Resolved]
  - Abdominal pain [Recovered/Resolved]
  - White blood cell count decreased [Recovered/Resolved]
  - C-reactive protein decreased [Recovered/Resolved]
